FAERS Safety Report 14482669 (Version 4)
Quarter: 2018Q1

REPORT INFORMATION
  Report Type: Report from Study
  Country: FR (occurrence: FR)
  Receive Date: 20180203
  Receipt Date: 20180308
  Transmission Date: 20180509
  Serious: Yes (Other)
  Sender: FDA-Public Use
  Company Number: FR-AMGEN-FRACT2018012947

PATIENT
  Age: 82 Year
  Sex: Male

DRUGS (13)
  1. CARFILZOMIB [Suspect]
     Active Substance: CARFILZOMIB
     Indication: PLASMA CELL MYELOMA
     Dosage: 125.3 MG, PER CHEMO REGIM
     Route: 042
     Dates: start: 20160301, end: 20180123
  2. EUPRESSYL [Concomitant]
     Active Substance: URAPIDIL
     Dosage: 60 MUG, UNK
     Route: 048
     Dates: start: 20170109
  3. LERCANIDIPINE [Concomitant]
     Active Substance: LERCANIDIPINE
     Dosage: 20 MUG, UNK
     Route: 048
     Dates: start: 20161212
  4. AMOXICILLINE [Concomitant]
     Active Substance: AMOXICILLIN
     Dosage: 1 G, UNK
     Route: 048
     Dates: start: 20160504, end: 20180122
  5. DUPHALAC [Concomitant]
     Active Substance: LACTULOSE
     Dosage: 1 UNK, UNK
     Route: 048
     Dates: start: 20160523, end: 20180214
  6. LANSOPRAZOL [Concomitant]
     Active Substance: LANSOPRAZOLE
     Dosage: 15 MG, UNK
     Route: 048
     Dates: start: 20160302
  7. VALACICLOVIR [Concomitant]
     Active Substance: VALACYCLOVIR HYDROCHLORIDE
     Dosage: 500 MG, UNK
     Route: 048
     Dates: start: 20160302
  8. SKENAN [Concomitant]
     Active Substance: MORPHINE SULFATE
     Dosage: 20 MG, UNK
     Route: 048
     Dates: start: 20160302, end: 20180214
  9. PENTACARINAT [Concomitant]
     Active Substance: PENTAMIDINE ISETHIONATE
     Dosage: 300 MG, UNK
     Route: 042
     Dates: start: 20161219
  10. CETRIZINE [Concomitant]
     Active Substance: CETIRIZINE HYDROCHLORIDE
     Dosage: 10 MG, UNK
     Route: 048
     Dates: start: 20161219
  11. DEXAMETHASONE. [Suspect]
     Active Substance: DEXAMETHASONE
     Indication: PLASMA CELL MYELOMA
     Dosage: 40 MG, PER CHEMO REGIM
     Route: 048
     Dates: start: 20160301, end: 20180123
  12. FORTIMEL [Concomitant]
     Active Substance: DIETARY SUPPLEMENT
     Dosage: 2 UNK, UNK
     Route: 048
     Dates: start: 20160523
  13. ACTISKENAN [Concomitant]
     Active Substance: MORPHINE SULFATE
     Dosage: 10 MG, UNK
     Route: 048
     Dates: start: 20160302, end: 20180214

REACTIONS (1)
  - Bladder transitional cell carcinoma [Not Recovered/Not Resolved]

NARRATIVE: CASE EVENT DATE: 20180129
